FAERS Safety Report 17711228 (Version 4)
Quarter: 2020Q3

REPORT INFORMATION
  Report Type: Report from Study
  Country: ES (occurrence: ES)
  Receive Date: 20200427
  Receipt Date: 20200929
  Transmission Date: 20201102
  Serious: Yes (Death, Life-Threatening, Hospitalization, Other)
  Sender: FDA-Public Use
  Company Number: ES-PFIZER INC-2019135460

PATIENT
  Age: 61 Year
  Sex: Female
  Weight: 63 kg

DRUGS (25)
  1. ACZ885 [Suspect]
     Active Substance: CANAKINUMAB
     Indication: NON-SMALL CELL LUNG CANCER
     Dosage: 200 MG, CYCLIC (EVERY 3 WEEKS) (CODE NOT BROKEN)
     Route: 058
     Dates: start: 20190219
  2. NATECAL [Concomitant]
     Active Substance: CALCIUM CARBONATE\CHOLECALCIFEROL
     Indication: OSTEOPOROSIS
     Dosage: UNK
     Dates: start: 20190215
  3. STILNOX [Concomitant]
     Active Substance: ZOLPIDEM TARTRATE
     Indication: INSOMNIA
     Dosage: UNK
     Dates: start: 20180101
  4. EUTIROX [Concomitant]
     Active Substance: LEVOTHYROXINE SODIUM
     Indication: HYPOTHYROIDISM
     Route: 065
     Dates: start: 20050101
  5. DEXAMETHASONE. [Concomitant]
     Active Substance: DEXAMETHASONE
     Indication: PREMEDICATION
     Dosage: UNK
     Dates: start: 20190217, end: 20190217
  6. PREGABALINE [Concomitant]
     Active Substance: PREGABALIN
     Indication: BACK PAIN
     Dosage: UNK
     Dates: start: 20190226, end: 20190330
  7. METAMIZOLE [Concomitant]
     Active Substance: METAMIZOLE
     Indication: MUSCULOSKELETAL CHEST PAIN
     Dosage: UNK
     Dates: start: 20190215
  8. MORPHINE [Concomitant]
     Active Substance: MORPHINE
     Indication: DYSPNOEA
     Dosage: UNK
     Dates: start: 20190226
  9. ACFOL [Concomitant]
     Active Substance: FOLIC ACID
     Indication: PROPHYLAXIS
     Dosage: UNK
     Dates: start: 20190314, end: 20190328
  10. LYRICA [Concomitant]
     Active Substance: PREGABALIN
     Indication: MUSCULOSKELETAL CHEST PAIN
     Dosage: UNK
     Dates: start: 20190215
  11. STILNOX [Concomitant]
     Active Substance: ZOLPIDEM TARTRATE
     Indication: DEPRESSION
  12. NOLOTIL [DEXTROPROPOXYPHENE;METAMIZOLE MAGNESIUM] [Concomitant]
     Indication: MUSCULOSKELETAL CHEST PAIN
     Dosage: UNK
     Route: 065
     Dates: start: 20190215
  13. AVARIC [Concomitant]
     Indication: MUSCULOSKELETAL CHEST PAIN
     Dosage: UNK
     Dates: start: 20190118
  14. LORAZEPAM. [Concomitant]
     Active Substance: LORAZEPAM
     Indication: INSOMNIA
  15. DEXAMETHASONE. [Concomitant]
     Active Substance: DEXAMETHASONE
     Dosage: UNK
     Dates: start: 20190218, end: 20190218
  16. ETORICOXIB. [Concomitant]
     Active Substance: ETORICOXIB
     Indication: MUSCULOSKELETAL CHEST PAIN
     Dosage: UNK
     Dates: start: 20181212
  17. LORAZEPAM. [Concomitant]
     Active Substance: LORAZEPAM
     Indication: DEPRESSION
     Dosage: UNK
     Dates: start: 20180101
  18. DEXAMETHASONE. [Concomitant]
     Active Substance: DEXAMETHASONE
     Dosage: UNK
     Dates: start: 20190219, end: 20190219
  19. AMBISONE [Concomitant]
     Active Substance: AMPHOTERICIN B
     Indication: PROPHYLAXIS
     Dosage: UNK
     Dates: start: 20190328, end: 20190329
  20. DOCETAXEL. [Suspect]
     Active Substance: DOCETAXEL
     Indication: NON-SMALL CELL LUNG CANCER
     Dosage: 128 MG, CYCLIC (EVERY 3 WEEKS)
     Route: 042
     Dates: start: 20190219
  21. HIDROFEROL [Concomitant]
     Active Substance: CALCIFEDIOL
     Indication: OSTEOPOROSIS
     Dosage: UNK
     Dates: start: 20190218
  22. DUROGESIC [Concomitant]
     Active Substance: FENTANYL
     Indication: MUSCULOSKELETAL CHEST PAIN
     Dosage: UNK
     Dates: start: 20190118
  23. ADIRO [Concomitant]
     Active Substance: ASPIRIN
     Indication: MESENTERIC ARTERY STENOSIS
     Dosage: UNK
     Dates: start: 20160816
  24. GRANISETRON [Concomitant]
     Active Substance: GRANISETRON
     Indication: PREMEDICATION
     Dosage: UNK
     Dates: start: 20190218, end: 20190218
  25. ZOLPIDEM [Concomitant]
     Active Substance: ZOLPIDEM TARTRATE
     Indication: INSOMNIA
     Dosage: UNK
     Dates: start: 20190228, end: 20190328

REACTIONS (4)
  - Flavobacterium infection [Fatal]
  - Pneumonia pneumococcal [Fatal]
  - Influenza [Recovered/Resolved]
  - Neutropenia [Recovered/Resolved with Sequelae]

NARRATIVE: CASE EVENT DATE: 20190225
